FAERS Safety Report 5792082-X (Version None)
Quarter: 2008Q2

REPORT INFORMATION
  Report Type: 
  Country: None (occurrence: None)
  Receive Date: 20080626
  Receipt Date: 20080618
  Transmission Date: 20081010
  Serious: Yes (Other)
  Sender: FDA-Public Use
  Company Number: US-GENENTECH-261958

PATIENT
  Sex: Female
  Weight: 53.6 kg

DRUGS (3)
  1. AVASTIN [Suspect]
     Indication: BREAST CANCER METASTATIC
     Dosage: 560 MG, Q2W
     Route: 042
     Dates: start: 20071107
  2. PACLITAXEL [Concomitant]
     Indication: BREAST CANCER METASTATIC
     Dosage: 40 MG/M2, UNK
  3. VORINOSTAT [Concomitant]
     Indication: BREAST CANCER METASTATIC
     Dosage: 300 MG, UNK

REACTIONS (1)
  - RETINAL TEAR [None]
